FAERS Safety Report 20628478 (Version 1)
Quarter: 2022Q1

REPORT INFORMATION
  Report Type: Report from Study
  Country: PR (occurrence: PR)
  Receive Date: 20220323
  Receipt Date: 20220323
  Transmission Date: 20220423
  Serious: Yes (Other)
  Sender: FDA-Public Use
  Company Number: PR-ABBVIE-22K-131-4326257-00

PATIENT
  Age: 59 Year
  Sex: Female
  Weight: 66.738 kg

DRUGS (1)
  1. VENCLEXTA [Suspect]
     Active Substance: VENETOCLAX
     Indication: Chronic lymphocytic leukaemia
     Route: 048
     Dates: start: 20210310

REACTIONS (2)
  - Wrist fracture [Unknown]
  - Fall [Recovered/Resolved with Sequelae]
